FAERS Safety Report 24107003 (Version 2)
Quarter: 2024Q3

REPORT INFORMATION
  Report Type: Spontaneous
  Country: US (occurrence: None)
  Receive Date: 20240717
  Receipt Date: 20240805
  Transmission Date: 20241016
  Serious: No
  Sender: ASTRAZENECA
  Company Number: 2024A162290

PATIENT
  Sex: Female

DRUGS (1)
  1. FASENRA [Suspect]
     Active Substance: BENRALIZUMAB
     Dosage: EVERY EIGHT WEEKS
     Route: 058
     Dates: start: 20240713

REACTIONS (1)
  - Illness [Unknown]
